FAERS Safety Report 6929617-7 (Version None)
Quarter: 2010Q3

REPORT INFORMATION
  Report Type: 
  Country: None (occurrence: None)
  Receive Date: 20100818
  Receipt Date: 20100812
  Transmission Date: 20110219
  Serious: Yes (Other)
  Sender: FDA-Public Use
  Company Number: US-BAYER-201030548NA

PATIENT
  Age: 30 Year
  Sex: Female

DRUGS (1)
  1. YAZ [Suspect]
     Indication: PRODUCT USED FOR UNKNOWN INDICATION
     Route: 048
     Dates: start: 20060901, end: 20071001

REACTIONS (5)
  - CHOLECYSTECTOMY [None]
  - DISCOMFORT [None]
  - GASTROINTESTINAL DISORDER [None]
  - NAUSEA [None]
  - POST CHOLECYSTECTOMY SYNDROME [None]
